FAERS Safety Report 7556636-2 (Version None)
Quarter: 2011Q2

REPORT INFORMATION
  Report Type: 
  Country: None (occurrence: None)
  Receive Date: 20110616
  Receipt Date: 20110616
  Transmission Date: 20111010
  Serious: Yes (Hospitalization)
  Sender: FDA-Public Use
  Company Number: None

PATIENT
  Sex: Female
  Weight: 95.9 kg

DRUGS (3)
  1. CYCLOPHOSPHAMIDE [Suspect]
     Dosage: 1200 MG
     Dates: end: 20100916
  2. DOXORUBICIN HYDROCHLORIDE [Suspect]
     Dosage: 120 MG
     Dates: end: 20100916
  3. TAXOL [Suspect]
     Dosage: 160 MG

REACTIONS (4)
  - CHEST DISCOMFORT [None]
  - SWELLING [None]
  - BUNDLE BRANCH BLOCK LEFT [None]
  - CARDIAC FAILURE CONGESTIVE [None]
